FAERS Safety Report 23591045 (Version 7)
Quarter: 2025Q1

REPORT INFORMATION
  Report Type: Report from Study
  Country: CA (occurrence: CA)
  Receive Date: 20240304
  Receipt Date: 20250106
  Transmission Date: 20250409
  Serious: Yes (Hospitalization, Other)
  Sender: TAKEDA
  Company Number: CA-TAKEDA-2024TUS009178

PATIENT
  Age: 76 Year
  Sex: Female

DRUGS (37)
  1. IXAZOMIB [Suspect]
     Active Substance: IXAZOMIB
     Indication: Plasma cell myeloma
  2. IXAZOMIB [Suspect]
     Active Substance: IXAZOMIB
  3. IXAZOMIB [Suspect]
     Active Substance: IXAZOMIB
  4. DEXAMETHASONE [Suspect]
     Active Substance: DEXAMETHASONE
     Indication: Plasma cell myeloma
     Dates: start: 20240103, end: 20240209
  5. DEXAMETHASONE [Suspect]
     Active Substance: DEXAMETHASONE
  6. REVLIMID [Suspect]
     Active Substance: LENALIDOMIDE
     Indication: Plasma cell myeloma
     Dates: start: 20240103, end: 20240209
  7. REVLIMID [Suspect]
     Active Substance: LENALIDOMIDE
  8. REVLIMID [Suspect]
     Active Substance: LENALIDOMIDE
  9. REVLIMID [Suspect]
     Active Substance: LENALIDOMIDE
  10. LINACLOTIDE [Concomitant]
     Active Substance: LINACLOTIDE
  11. ONDANSETRON [Concomitant]
     Active Substance: ONDANSETRON
  12. POLYETHYLENE GLYCOL 3350\POTASSIUM CHLORIDE\SODIUM BICARBONATE\SODIUM [Concomitant]
     Active Substance: POLYETHYLENE GLYCOL 3350\POTASSIUM CHLORIDE\SODIUM BICARBONATE\SODIUM CHLORIDE\SODIUM SULFATE
  13. ACYCLOVIR [Concomitant]
     Active Substance: ACYCLOVIR
     Dosage: 400 MILLIGRAM, BID
  14. AMLODIPINE [Concomitant]
     Active Substance: AMLODIPINE BESYLATE
     Dosage: 5 MILLIGRAM, QD
  15. IRBESARTAN [Concomitant]
     Active Substance: IRBESARTAN
  16. CRESTOR [Concomitant]
     Active Substance: ROSUVASTATIN CALCIUM
  17. CITALOPRAM [Concomitant]
     Active Substance: CITALOPRAM
     Dosage: 20 MILLIGRAM, QD
  18. PANTOPRAZOLE [Concomitant]
     Active Substance: PANTOPRAZOLE
     Dosage: 40 MILLIGRAM, QD
  19. VITAMIN D [Concomitant]
     Active Substance: VITAMIN D NOS
     Dosage: UNK, QD
  20. CALCIUM [Concomitant]
     Active Substance: CALCIUM
  21. MAGNESIUM [Concomitant]
     Active Substance: MAGNESIUM
     Dosage: 20 MILLIGRAM, QD
  22. SPIRONOLACTONE [Concomitant]
     Active Substance: SPIRONOLACTONE
     Dosage: 12.5 MILLIGRAM, QD
  23. ASPIRIN [Concomitant]
     Active Substance: ASPIRIN
     Dosage: 81 MILLIGRAM, QD
  24. B12 [Concomitant]
     Dosage: UNK, Q2WEEKS
  25. PROLIA [Concomitant]
     Active Substance: DENOSUMAB
  26. BREO ELLIPTA [Concomitant]
     Active Substance: FLUTICASONE FUROATE\VILANTEROL TRIFENATATE
  27. ALBUTEROL [Concomitant]
     Active Substance: ALBUTEROL
  28. ATROVENT HFA [Concomitant]
     Active Substance: IPRATROPIUM BROMIDE
  29. FOLIC ACID [Concomitant]
     Active Substance: FOLIC ACID
     Dosage: 5 MILLIGRAM, QD
  30. TYLENOL [Concomitant]
     Active Substance: ACETAMINOPHEN
  31. ROSUVASTATIN [Concomitant]
     Active Substance: ROSUVASTATIN
     Dosage: 20 MILLIGRAM, QD
  32. SENNOSIDES [Concomitant]
     Active Substance: SENNOSIDES
     Dosage: 8.6 MILLIGRAM, BID
  33. LEVOTHYROXINE [Concomitant]
     Active Substance: LEVOTHYROXINE
     Dosage: 50 MICROGRAM, QD
  34. MIRABEGRON [Concomitant]
     Active Substance: MIRABEGRON
     Dosage: 25 MILLIGRAM, QD
  35. BUDESONIDE\FORMOTEROL [Concomitant]
     Active Substance: BUDESONIDE\FORMOTEROL
     Dosage: UNK, BID
  36. SENOKOT [Concomitant]
     Active Substance: SENNOSIDES
  37. MAGNESIUM GLUCONATE [Concomitant]
     Active Substance: MAGNESIUM GLUCONATE
     Dosage: 500 MILLIGRAM, QD

REACTIONS (34)
  - Acute kidney injury [Recovered/Resolved]
  - Cerebral haemorrhage [Recovered/Resolved]
  - Cerebral haematoma [Recovered/Resolved]
  - Pneumonia respiratory syncytial viral [Recovered/Resolved]
  - Syncope [Recovering/Resolving]
  - Pancytopenia [Recovered/Resolved]
  - Dysphagia [Recovered/Resolved]
  - Pleurisy [Recovered/Resolved]
  - Asthma [Recovered/Resolved]
  - Pulmonary mass [Recovered/Resolved]
  - Dyspnoea [Recovered/Resolved]
  - Cough [Not Recovered/Not Resolved]
  - Pyrexia [Recovered/Resolved]
  - Fall [Recovering/Resolving]
  - Diverticulitis [Recovering/Resolving]
  - Chest discomfort [Not Recovered/Not Resolved]
  - Bronchitis [Not Recovered/Not Resolved]
  - Tongue discomfort [Not Recovered/Not Resolved]
  - Gastrooesophageal reflux disease [Not Recovered/Not Resolved]
  - Tongue blistering [Not Recovered/Not Resolved]
  - Erythema [Not Recovered/Not Resolved]
  - Dry skin [Not Recovered/Not Resolved]
  - Taste disorder [Not Recovered/Not Resolved]
  - Scab [Not Recovered/Not Resolved]
  - Dry mouth [Not Recovered/Not Resolved]
  - Candida infection [Not Recovered/Not Resolved]
  - Respiratory tract infection [Recovered/Resolved]
  - Hypercalcaemia [Unknown]
  - Hypophagia [Unknown]
  - Asthenia [Unknown]
  - Fatigue [Unknown]
  - Decreased appetite [Unknown]
  - Breast discomfort [Unknown]
  - Platelet count decreased [Recovering/Resolving]

NARRATIVE: CASE EVENT DATE: 20240209
